FAERS Safety Report 8690335 (Version 2)
Quarter: 2012Q4

REPORT INFORMATION
  Report Type: 
  Country: US (occurrence: US)
  Receive Date: 20120727
  Receipt Date: 20120917
  Transmission Date: 20130627
  Serious: No
  Sender: FDA-Public Use
  Company Number: US-ASTRAZENECA-2012SE23535

PATIENT
  Age: 41 Year
  Sex: Female

DRUGS (2)
  1. SEROQUEL [Suspect]
     Indication: INSOMNIA
     Dosage: TWO TABLETS AT NIGHT AND 1 IN THE MORNING AS NEEDED
     Route: 048
  2. SEROQUEL [Suspect]
     Indication: INTERMITTENT EXPLOSIVE DISORDER
     Dosage: TWO TABLETS AT NIGHT AND 1 IN THE MORNING AS NEEDED
     Route: 048

REACTIONS (6)
  - Nasopharyngitis [Unknown]
  - Feeling abnormal [Unknown]
  - Anger [Unknown]
  - Drug ineffective for unapproved indication [Unknown]
  - Off label use [Unknown]
  - Drug dose omission [Unknown]
